FAERS Safety Report 15438598 (Version 2)
Quarter: 2018Q4

REPORT INFORMATION
  Report Type: Other
  Country: GB (occurrence: GR)
  Receive Date: 20180928
  Receipt Date: 20181129
  Transmission Date: 20190204
  Serious: Yes (Hospitalization, Other)
  Sender: FDA-Public Use
  Company Number: GB-DIMETHAID UK LIMITED-DIM-002537-2018

PATIENT
  Age: 72 Year

DRUGS (4)
  1. CARVEDILOL. [Interacting]
     Active Substance: CARVEDILOL
     Indication: CARDIAC FAILURE
     Dosage: 6.25 MG, BID
     Route: 065
  2. IRBESARTAN. [Interacting]
     Active Substance: IRBESARTAN
     Indication: CARDIAC FAILURE
     Dosage: 1 DF, QD
     Route: 065
  3. FUROSEMIDE, AMILORIDE HYDROCHLORIDE DIHYDRATE [Interacting]
     Active Substance: AMILORIDE HYDROCHLORIDE\FUROSEMIDE
     Indication: CARDIAC FAILURE
     Dosage: 1 DF, BID
     Route: 065
  4. DICLOFENAC SODIUM. [Suspect]
     Active Substance: DICLOFENAC SODIUM
     Indication: CARDIAC FAILURE
     Dosage: UNK
     Route: 065

REACTIONS (12)
  - Electrocardiogram T wave abnormal [Unknown]
  - Muscular weakness [Recovered/Resolved]
  - Product administration error [Unknown]
  - Orthostatic hypotension [Recovered/Resolved]
  - Product use in unapproved indication [Recovered/Resolved]
  - Hyperkalaemia [Recovered/Resolved]
  - Blood urea increased [Unknown]
  - Renal impairment [Recovered/Resolved]
  - Blood creatinine increased [Unknown]
  - Blood sodium increased [Unknown]
  - Hyponatraemia [Recovered/Resolved]
  - Product use issue [Recovered/Resolved]
